FAERS Safety Report 6999814-3 (Version None)
Quarter: 2010Q3

REPORT INFORMATION
  Report Type: 
  Country: None (occurrence: None)
  Receive Date: 20100920
  Receipt Date: 20100916
  Transmission Date: 20110219
  Serious: Yes (Other)
  Sender: FDA-Public Use
  Company Number: ES-BRISTOL-MYERS SQUIBB COMPANY-15290612

PATIENT
  Age: 37 Year
  Sex: Female

DRUGS (1)
  1. ORENCIA [Suspect]
     Dosage: TOTAL INFUSIONS:5,EARLY SEP:4TH DOSE,16SEP10:5TH
     Dates: start: 20100601

REACTIONS (3)
  - MOUTH ULCERATION [None]
  - PYREXIA [None]
  - RASH [None]
